FAERS Safety Report 9200630 (Version 1)
Quarter: 2013Q1

REPORT INFORMATION
  Report Type: Spontaneous
  Country: GB (occurrence: GB)
  Receive Date: 20130330
  Receipt Date: 20130330
  Transmission Date: 20140127
  Serious: Yes (Hospitalization, Other)
  Sender: FDA-Public Use
  Company Number: GB-PFIZER INC-2004004816

PATIENT
  Sex: Female

DRUGS (3)
  1. IBUPROFEN [Suspect]
     Indication: PERIARTHRITIS
     Dosage: 400 MG, 4X/DAY
     Route: 048
  2. IBUPROFEN [Interacting]
     Indication: TENDONITIS
     Dosage: 400 MG, 1X/DAY
     Route: 048
  3. LITHIUM CARBONATE [Interacting]
     Indication: BIPOLAR DISORDER
     Dosage: UNSPECIFIED AMOUNT
     Route: 048

REACTIONS (6)
  - Renal failure [Recovered/Resolved]
  - Toxicity to various agents [Recovered/Resolved]
  - Drug interaction [Recovered/Resolved]
  - Drug level increased [Recovered/Resolved]
  - Plasma cell myeloma [Unknown]
  - Pathological fracture [Unknown]
